FAERS Safety Report 4626475-0 (Version None)
Quarter: 2005Q1

REPORT INFORMATION
  Report Type: 
  Country: None (occurrence: None)
  Receive Date: 20050330
  Receipt Date: 20050322
  Transmission Date: 20050727
  Serious: Yes (Life-Threatening, Hospitalization)
  Sender: FDA-Public Use
  Company Number: 2004-12-1180

PATIENT
  Age: 50 Year
  Sex: Male
  Weight: 135.1719 kg

DRUGS (7)
  1. PEG-INTRON [Suspect]
     Indication: HEPATITIS
     Dosage: 150 MCG QWK SUBCUTANEOUS
     Route: 058
     Dates: start: 20040401, end: 20050308
  2. REBETOL [Suspect]
     Indication: HEPATITIS C
     Dosage: 1400 MG QD ORAL
     Route: 048
     Dates: start: 20040401, end: 20050308
  3. GLUCOTROL [Concomitant]
  4. GLUCOPHAGE [Concomitant]
  5. ALTACE [Concomitant]
  6. AVANDIA [Concomitant]
  7. COZAAR [Concomitant]

REACTIONS (4)
  - ANAEMIA [None]
  - DEEP VEIN THROMBOSIS [None]
  - RASH PRURITIC [None]
  - SKIN ULCER [None]
